FAERS Safety Report 16463083 (Version 2)
Quarter: 2019Q3

REPORT INFORMATION
  Report Type: Report from Study
  Country: CA (occurrence: CA)
  Receive Date: 20190621
  Receipt Date: 20190701
  Transmission Date: 20191004
  Serious: Yes (Other)
  Sender: FDA-Public Use
  Company Number: CA-PFIZER INC-2015260628

PATIENT
  Age: 16 Year
  Sex: Female

DRUGS (4)
  1. BUPIVACAINE HCL [Suspect]
     Active Substance: BUPIVACAINE HYDROCHLORIDE
     Indication: LIGAMENT OPERATION
  2. BUPIVACAINE HCL [Suspect]
     Active Substance: BUPIVACAINE HYDROCHLORIDE
     Indication: JOINT ARTHROPLASTY
     Dosage: UNK
     Route: 014
  3. EPINEPHRINE. [Suspect]
     Active Substance: EPINEPHRINE
     Indication: JOINT ARTHROPLASTY
     Dosage: UNK
     Route: 014
  4. EPINEPHRINE. [Suspect]
     Active Substance: EPINEPHRINE
     Indication: LIGAMENT OPERATION

REACTIONS (1)
  - Chondrolysis [Unknown]
